FAERS Safety Report 23173646 (Version 1)
Quarter: 2023Q4

REPORT INFORMATION
  Report Type: Spontaneous
  Country: DE (occurrence: DE)
  Receive Date: 20231111
  Receipt Date: 20231111
  Transmission Date: 20240110
  Serious: Yes (Other)
  Sender: FDA-Public Use
  Company Number: DE-UCBSA-2023036975

PATIENT
  Sex: Male

DRUGS (2)
  1. LAMOTRIGINE [Suspect]
     Active Substance: LAMOTRIGINE
     Indication: Product used for unknown indication
     Dosage: UNK
     Route: 065
  2. LACOSAMIDE [Suspect]
     Active Substance: LACOSAMIDE
     Indication: Product used for unknown indication
     Dosage: UNK
     Route: 065

REACTIONS (14)
  - Epilepsy [Unknown]
  - Umbilical haemorrhage [Unknown]
  - Restlessness [Unknown]
  - Hypophagia [Unknown]
  - Muscle twitching [Unknown]
  - Weight decreased [Unknown]
  - Insomnia [Unknown]
  - Pruritus [Unknown]
  - Anger [Unknown]
  - Hypersensitivity [Unknown]
  - Subcutaneous abscess [Unknown]
  - Lip injury [Unknown]
  - Alopecia [Unknown]
  - Aggression [Unknown]
